FAERS Safety Report 13277347 (Version 2)
Quarter: 2017Q1

REPORT INFORMATION
  Report Type: Spontaneous
  Country: FR (occurrence: FR)
  Receive Date: 20170228
  Receipt Date: 20170301
  Transmission Date: 20170428
  Serious: Yes (Hospitalization, Other)
  Sender: FDA-Public Use
  Company Number: FR-PFIZER INC-2017080188

PATIENT
  Age: 49 Year
  Sex: Female

DRUGS (8)
  1. PREGABALIN. [Concomitant]
     Active Substance: PREGABALIN
     Dosage: 100 MG, 3X/DAY (IN THE MORNING, AT NOON AND IN THE EVENING)
  2. DECONTRACTYL [Suspect]
     Active Substance: MEPHENESIN
     Dosage: 5 OR 6 DF OF 500 MG IN A SINGLE INTAKE
     Route: 048
     Dates: start: 201601, end: 201601
  3. ZOLPIDEM [Concomitant]
     Active Substance: ZOLPIDEM\ZOLPIDEM TARTRATE
     Dosage: 1 DF, EVENING
  4. BROMAZEPAM [Concomitant]
     Active Substance: BROMAZEPAM
     Dosage: UNK UNK, 2X/DAY
  5. SEROPLEX [Concomitant]
     Active Substance: ESCITALOPRAM OXALATE
     Dosage: 1 DF, DAILY
     Dates: start: 2011
  6. PARACETAMOL CODEINE [Concomitant]
     Active Substance: ACETAMINOPHEN\CODEINE PHOSPHATE
     Dosage: TWICE IN THE MORNING, TWICE AT NOON AND TWICE IN THE EVENING
  7. LYRICA [Suspect]
     Active Substance: PREGABALIN
     Dosage: 500 MG, SINGLE
     Route: 048
     Dates: start: 201601, end: 201601
  8. MEPHENESIN [Concomitant]
     Active Substance: MEPHENESIN
     Dosage: UNK UNK, AS NEEDED

REACTIONS (5)
  - Somnolence [Unknown]
  - Malaise [Unknown]
  - Loss of consciousness [Unknown]
  - Metabolic acidosis [Recovered/Resolved]
  - Drug abuser [Recovered/Resolved]

NARRATIVE: CASE EVENT DATE: 201601
